FAERS Safety Report 6547750-9 (Version None)
Quarter: 2010Q1

REPORT INFORMATION
  Report Type: 
  Country: None (occurrence: None)
  Receive Date: 20100124
  Receipt Date: 20091005
  Transmission Date: 20100710
  Serious: No
  Sender: FDA-Public Use
  Company Number: TR-ALEXION-A200900821

PATIENT

DRUGS (4)
  1. SOLIRIS [Suspect]
     Dosage: 600 MG, QW
     Route: 042
     Dates: start: 20090918
  2. PREDNOL                            /00049601/ [Concomitant]
     Dosage: 1500 UNK, UNK
     Dates: start: 20080401
  3. CYCLOSPORINE [Concomitant]
     Dosage: UNK
     Dates: start: 20090401
  4. ANTIBIOTICS [Concomitant]

REACTIONS (1)
  - INFUSION RELATED REACTION [None]
